FAERS Safety Report 9137740 (Version 2)
Quarter: 2013Q1

REPORT INFORMATION
  Report Type: Spontaneous
  Country: PH (occurrence: PH)
  Receive Date: 20130304
  Receipt Date: 20130315
  Transmission Date: 20140127
  Serious: Yes (Hospitalization)
  Sender: FDA-Public Use
  Company Number: PH-009507513-1302PHL013566

PATIENT
  Age: 61 Year
  Sex: Female

DRUGS (1)
  1. JANUMET [Suspect]
     Dosage: 1 DF (50/500MG), BID
     Route: 048

REACTIONS (3)
  - Gastric disorder [Unknown]
  - Urinary tract infection [Unknown]
  - Blood glucose increased [Unknown]
